FAERS Safety Report 8443688-0 (Version None)
Quarter: 2012Q2

REPORT INFORMATION
  Report Type: 
  Country: None (occurrence: None)
  Receive Date: 20120606
  Receipt Date: 20120531
  Transmission Date: 20120825
  Serious: No
  Sender: FDA-Public Use
  Company Number: 2012SP026332

PATIENT
  Age: 69 Year
  Sex: Female

DRUGS (7)
  1. DEPAKENE [Concomitant]
  2. LORAZEPAM [Concomitant]
  3. METFORMIN HCL [Concomitant]
  4. SYCREST (ASENAPINE /05706901/) [Suspect]
     Indication: MANIA
     Dosage: 5;10 MG, BID, QAM, PO
     Route: 048
     Dates: start: 20111208, end: 20111213
  5. LANTUS [Concomitant]
  6. METFORMIN HCL [Concomitant]
  7. KARVEA [Concomitant]

REACTIONS (2)
  - SYNCOPE [None]
  - HYPOTENSION [None]
